FAERS Safety Report 23152784 (Version 1)
Quarter: 2023Q4

REPORT INFORMATION
  Report Type: Spontaneous
  Country: ES (occurrence: ES)
  Receive Date: 20231107
  Receipt Date: 20231107
  Transmission Date: 20240109
  Serious: Yes (Other)
  Sender: FDA-Public Use
  Company Number: ES-PFIZER INC-PV202300171738

PATIENT

DRUGS (6)
  1. GOSERELIN [Suspect]
     Active Substance: GOSERELIN
     Indication: Product used for unknown indication
     Dosage: QUARTERLY
     Route: 065
     Dates: start: 20200910, end: 20220425
  2. ZOLADEX [Suspect]
     Active Substance: GOSERELIN ACETATE
     Indication: Product used for unknown indication
     Dosage: UNK
     Route: 065
  3. PALBOCICLIB [Suspect]
     Active Substance: PALBOCICLIB
     Indication: Breast cancer metastatic
     Dosage: 125 MG, CYCLIC (X 21 D/4WK)125.0MG EVERY CYCLE
     Route: 065
     Dates: start: 20200910
  4. PALBOCICLIB [Suspect]
     Active Substance: PALBOCICLIB
     Dosage: 100 MG, CYCLIC (X 21 D/4WK)100.0MG EVERY CYCLE
     Route: 065
     Dates: start: 202102
  5. DENOSUMAB [Suspect]
     Active Substance: DENOSUMAB
     Indication: Product used for unknown indication
     Dosage: UNK
     Route: 065
     Dates: start: 202010, end: 202209
  6. LETROZOLE [Suspect]
     Active Substance: LETROZOLE
     Indication: Product used for unknown indication
     Dosage: 2.5 MG, DAILY
     Route: 065
     Dates: start: 20200910

REACTIONS (5)
  - Neutropenia [Recovered/Resolved]
  - Musculoskeletal discomfort [Unknown]
  - Menopausal symptoms [Not Recovered/Not Resolved]
  - Asthenia [Recovered/Resolved]
  - Insomnia [Recovered/Resolved]
